FAERS Safety Report 6978717-4 (Version None)
Quarter: 2010Q3

REPORT INFORMATION
  Report Type: 
  Country: None (occurrence: None)
  Receive Date: 20100913
  Receipt Date: 20100903
  Transmission Date: 20110219
  Serious: Yes (Hospitalization)
  Sender: FDA-Public Use
  Company Number: B0672632A

PATIENT
  Sex: Female
  Weight: 76 kg

DRUGS (6)
  1. LAPATINIB [Suspect]
     Route: 048
     Dates: start: 20100610
  2. PACLITAXEL [Suspect]
     Route: 042
     Dates: start: 20100610
  3. IBUPROFEN [Concomitant]
     Dates: start: 20100617
  4. LOPERAMIDE [Concomitant]
     Dates: start: 20100621
  5. RANITIDINE [Concomitant]
     Indication: PROPHYLAXIS
     Dates: start: 20100610
  6. CLEMASTIN [Concomitant]
     Indication: PROPHYLAXIS
     Dates: start: 20100610

REACTIONS (2)
  - DEVICE RELATED INFECTION [None]
  - INJECTION SITE REACTION [None]
